FAERS Safety Report 12925324 (Version 1)
Quarter: 2016Q4

REPORT INFORMATION
  Report Type: Spontaneous
  Country: US (occurrence: US)
  Receive Date: 20161109
  Receipt Date: 20161109
  Transmission Date: 20170207
  Serious: Yes (Hospitalization)
  Sender: FDA-Public Use
  Company Number: US-PFIZER INC-2016512400

PATIENT
  Age: 41 Year
  Sex: Female

DRUGS (4)
  1. GRANISETRON [Concomitant]
     Active Substance: GRANISETRON
     Indication: ANTIEMETIC SUPPORTIVE CARE
     Dosage: 2 MG PO DAILY FOR THE FIRST THREE DAYS
     Route: 048
  2. IDARUBICIN [Concomitant]
     Active Substance: IDARUBICIN
     Indication: ACUTE MYELOID LEUKAEMIA
     Dosage: 12 MG/M2 IV DAILY FOR THE FIRST THREE DAYS
     Route: 042
  3. DEXAMETHASONE. [Concomitant]
     Active Substance: DEXAMETHASONE
     Indication: ANTIEMETIC SUPPORTIVE CARE
     Dosage: 8 MG PO DAILY FOR SEVEN DAYS
     Route: 048
  4. CYTARABINE. [Suspect]
     Active Substance: CYTARABINE
     Indication: ACUTE MYELOID LEUKAEMIA
     Dosage: 100 MG/M2 CONTINUOUS INTRAVENOUS (IV) INFUSION EVERY 24 H FOR SEVEN DAYS
     Route: 042

REACTIONS (2)
  - Cytarabine syndrome [Recovered/Resolved]
  - Pleural effusion [Recovered/Resolved]
